FAERS Safety Report 21914902 (Version 1)
Quarter: 2023Q1

REPORT INFORMATION
  Report Type: Report from Study
  Country: NL (occurrence: None)
  Receive Date: 20230126
  Receipt Date: 20230126
  Transmission Date: 20230418
  Serious: Yes (Life-Threatening)
  Sender: FDA-Public Use
  Company Number: NL-ROCHE-3271336

PATIENT
  Age: 48 Year
  Sex: Male

DRUGS (4)
  1. ATEZOLIZUMAB [Suspect]
     Active Substance: ATEZOLIZUMAB
     Indication: Drug resistance
     Dosage: CUMULATIVE DOSE WAS 2400 MG FOR 2 CYCLES.?ON 16/JAN/2023, LAST DOSE OF ATEZOLIZUMAB WAS ADMINISTERED
     Route: 041
     Dates: start: 20221220
  2. BEVACIZUMAB [Suspect]
     Active Substance: BEVACIZUMAB
     Indication: Drug resistance
     Dosage: CUMULATIVE DOSE WAS 1300 MG FOR 1 CYCLE.?ON 20/DEC/2022, LAST DOSE OF BEVACIZUMAB WAS ADMINISTERED.
     Route: 042
     Dates: start: 20221220
  3. PACLITAXEL [Suspect]
     Active Substance: PACLITAXEL
     Indication: Drug resistance
     Dosage: CUMULATIVE DOSE WAS 438 MG FOR 1 CYCLE.?ON 20/DEC/2022, LAST DOSE OF PACLITAXEL WAS ADMINISTERED.
     Route: 042
     Dates: start: 20221220
  4. CARBOPLATIN [Suspect]
     Active Substance: CARBOPLATIN
     Indication: Drug resistance
     Dosage: CUMULATIVE DOSE WAS 870 MG FOR 1 CYCLE.?ON 20/DEC/2022, LAST DOSE OF CARBOPLATIN WAS ADMINISTERED.
     Route: 042
     Dates: start: 20221220

REACTIONS (1)
  - Cerebral infarction [Recovered/Resolved with Sequelae]

NARRATIVE: CASE EVENT DATE: 20230114
